FAERS Safety Report 6710096-X (Version None)
Quarter: 2010Q2

REPORT INFORMATION
  Report Type: 
  Country: None (occurrence: None)
  Receive Date: 20100430
  Receipt Date: 20100416
  Transmission Date: 20101027
  Serious: Yes (Hospitalization, Other)
  Sender: FDA-Public Use
  Company Number: 010373

PATIENT
  Sex: Female
  Weight: 88.9 kg

DRUGS (10)
  1. LACOSAMIDE [Suspect]
     Indication: EPILEPSY
     Dosage: 250 MG, BID, ORAL
     Route: 048
     Dates: start: 20090917
  2. FOLIC ACID [Concomitant]
  3. OMEPRAZOLE [Concomitant]
  4. TYLENOL W/ CODEINE [Concomitant]
  5. CHILDREN'S TYLENOL COLD + FLU [Concomitant]
  6. MOTRIN [Concomitant]
  7. CELEXA [Concomitant]
  8. TUMS [Concomitant]
  9. LAMICTAL [Concomitant]
  10. ROBITUSSIN DM [Concomitant]

REACTIONS (3)
  - DEPRESSED LEVEL OF CONSCIOUSNESS [None]
  - GRAND MAL CONVULSION [None]
  - STATUS EPILEPTICUS [None]
